FAERS Safety Report 7406630-7 (Version None)
Quarter: 2011Q2

REPORT INFORMATION
  Report Type: 
  Country: None (occurrence: None)
  Receive Date: 20110411
  Receipt Date: 20110406
  Transmission Date: 20111010
  Serious: Yes (Other)
  Sender: FDA-Public Use
  Company Number: US-BRISTOL-MYERS SQUIBB COMPANY-15656820

PATIENT
  Age: 63 Year
  Sex: Female

DRUGS (5)
  1. ABILIFY [Suspect]
     Indication: ANXIETY
  2. ABILIFY [Suspect]
     Indication: DEPRESSION
  3. ATIVAN [Concomitant]
  4. SYNTHROID [Concomitant]
  5. ATENOLOL [Concomitant]

REACTIONS (1)
  - LEUKOCYTOCLASTIC VASCULITIS [None]
